FAERS Safety Report 6354210-7 (Version None)
Quarter: 2009Q3

REPORT INFORMATION
  Report Type: 
  Country: None (occurrence: None)
  Receive Date: 20090914
  Receipt Date: 20090903
  Transmission Date: 20100115
  Serious: Yes (Other)
  Sender: FDA-Public Use
  Company Number: PHHY2009BR37675

PATIENT
  Sex: Female

DRUGS (7)
  1. GALVUS MET COMBIPACK [Suspect]
     Indication: BLOOD GLUCOSE INCREASED
     Dosage: AFTER THE LUNCH AND DINNER
     Route: 048
  2. GALVUS MET COMBIPACK [Suspect]
     Dosage: UNK
     Dates: start: 20090811
  3. CIPROFIBRATE [Concomitant]
     Indication: BLOOD CHOLESTEROL INCREASED
     Dosage: 1 TABLET DAILY
     Route: 048
     Dates: start: 20080901
  4. CIPROFIBRATE [Concomitant]
     Dosage: UNK
     Dates: start: 20090811
  5. GLIMEPIRIDE [Concomitant]
     Indication: BLOOD GLUCOSE INCREASED
     Dosage: 1 TABLET IN THE MORNING AND NIGHT
     Route: 048
  6. GLIMEPIRIDE [Concomitant]
     Dosage: UNK
     Dates: start: 20090811
  7. ANCORON [Concomitant]
     Indication: ARRHYTHMIA
     Dosage: 1 TABLET DAILY
     Route: 048

REACTIONS (4)
  - GLYCOSYLATED HAEMOGLOBIN INCREASED [None]
  - HERNIA [None]
  - HERNIA REPAIR [None]
  - JOINT SWELLING [None]
